FAERS Safety Report 25839458 (Version 4)
Quarter: 2025Q4

REPORT INFORMATION
  Report Type: Spontaneous
  Country: JP (occurrence: JP)
  Receive Date: 20250924
  Receipt Date: 20251203
  Transmission Date: 20260118
  Serious: Yes (Hospitalization, Other)
  Sender: ALEXION PHARMACEUTICALS
  Company Number: JP-AstraZeneca-CH-00952970A

PATIENT
  Age: 6 Decade
  Sex: Male

DRUGS (1)
  1. ULTOMIRIS [Suspect]
     Active Substance: RAVULIZUMAB-CWVZ
     Indication: Paroxysmal nocturnal haemoglobinuria
     Dosage: Q8W

REACTIONS (6)
  - Electrocardiogram Q wave abnormal [Recovered/Resolved]
  - Arrhythmia [Recovered/Resolved]
  - Anaphylactic reaction [Recovered/Resolved]
  - Bradycardia [Recovered/Resolved]
  - Urticaria [Recovered/Resolved]
  - Pyrexia [Recovered/Resolved]
